FAERS Safety Report 23082404 (Version 1)
Quarter: 2023Q4

REPORT INFORMATION
  Report Type: Spontaneous
  Country: US (occurrence: US)
  Receive Date: 20231019
  Receipt Date: 20231019
  Transmission Date: 20240109
  Serious: Yes (Death, Life-Threatening, Hospitalization, Other)
  Sender: FDA-Public Use
  Company Number: US-MLMSERVICE-20231005-4591905-1

PATIENT
  Age: 70 Year
  Sex: Male

DRUGS (4)
  1. MIRTAZAPINE [Suspect]
     Active Substance: MIRTAZAPINE
     Indication: Depression
     Dosage: UNK
     Route: 065
  2. MIRTAZAPINE [Suspect]
     Active Substance: MIRTAZAPINE
     Indication: Anxiety
  3. LASIX [Suspect]
     Active Substance: FUROSEMIDE
     Indication: Product used for unknown indication
     Dosage: UNK(UP-TITRATED TO 3 TIMES HIS ROUTINE DOSE)
     Route: 065
  4. LASIX [Suspect]
     Active Substance: FUROSEMIDE
     Dosage: UNK (ROUTINE DOSE)
     Route: 065

REACTIONS (6)
  - BRASH syndrome [Fatal]
  - Hypotension [Fatal]
  - Unresponsive to stimuli [Fatal]
  - Atrioventricular block [Fatal]
  - Electrocardiogram QRS complex prolonged [Fatal]
  - Pleural effusion [Fatal]
